FAERS Safety Report 10137340 (Version 8)
Quarter: 2014Q3

REPORT INFORMATION
  Report Type: Spontaneous
  Country: HU (occurrence: HU)
  Receive Date: 20140429
  Receipt Date: 20140721
  Transmission Date: 20150326
  Serious: Yes (Other)
  Sender: FDA-Public Use
  Company Number: HU-PFIZER INC-2013182622

PATIENT
  Age: 50 Year
  Sex: Male

DRUGS (3)
  1. SUTENT [Suspect]
     Active Substance: SUNITINIB MALATE
     Dosage: 50 MG, 1X/DAY (9TH CYCLE)
     Route: 048
     Dates: start: 20140501, end: 20140528
  2. SUTENT [Suspect]
     Active Substance: SUNITINIB MALATE
     Indication: RENAL CANCER METASTATIC
     Dosage: 50 MG, ONCE DAILY FOR 28 DAYS CYCLIC
     Route: 048
     Dates: start: 20130528
  3. SUTENT [Suspect]
     Active Substance: SUNITINIB MALATE
     Dosage: UNK, CYCLIC FINISHED 8TH CYCLE
     Dates: end: 20140417

REACTIONS (12)
  - Dry skin [Recovered/Resolved]
  - Renal cancer metastatic [Unknown]
  - Mastication disorder [Recovered/Resolved]
  - Blood pressure increased [Recovered/Resolved]
  - Dysphonia [Not Recovered/Not Resolved]
  - Brain oedema [Recovering/Resolving]
  - Disease progression [Unknown]
  - Vocal cord paralysis [Not Recovered/Not Resolved]
  - Stomatitis [Not Recovered/Not Resolved]
  - Diarrhoea [Recovered/Resolved]
  - Visual impairment [Recovered/Resolved]
  - Glossitis [Recovered/Resolved]

NARRATIVE: CASE EVENT DATE: 20140418
